FAERS Safety Report 5891045-3 (Version None)
Quarter: 2008Q3

REPORT INFORMATION
  Report Type: 
  Country: None (occurrence: None)
  Receive Date: 20080918
  Receipt Date: 20080918
  Transmission Date: 20090109
  Serious: Yes (Other)
  Sender: FDA-Public Use
  Company Number: None

PATIENT
  Age: 47 Year
  Sex: Female
  Weight: 78.9259 kg

DRUGS (1)
  1. EFFEXOR XR [Suspect]
     Indication: DEPRESSION
     Dosage: 150 MG 1 A DAY PO
     Route: 048
     Dates: start: 19990101, end: 20080917

REACTIONS (9)
  - CONDITION AGGRAVATED [None]
  - EMOTIONAL DISTRESS [None]
  - HYPERHIDROSIS [None]
  - ILL-DEFINED DISORDER [None]
  - INSOMNIA [None]
  - LOSS OF LIBIDO [None]
  - RASH [None]
  - SINUSITIS [None]
  - SNORING [None]
